FAERS Safety Report 5272015-5 (Version None)
Quarter: 2007Q1

REPORT INFORMATION
  Report Type: 
  Country: None (occurrence: None)
  Receive Date: 20070315
  Receipt Date: 20070312
  Transmission Date: 20070707
  Serious: Yes (Hospitalization, Other)
  Sender: FDA-Public Use
  Company Number: 2007-044DP

PATIENT
  Age: 6 Month
  Sex: Female

DRUGS (4)
  1. VALPROATE SODIUM [Suspect]
     Indication: EPILEPSY
     Dates: start: 20031101
  2. VALPROATE SODIUM [Suspect]
     Indication: MUSCLE SPASMS
     Dates: start: 20031101
  3. ZONISAMIDE [Suspect]
     Indication: EPILEPSY
     Dates: start: 20031201, end: 20040301
  4. ZONISAMIDE [Suspect]
     Indication: MUSCLE SPASMS
     Dates: start: 20031201, end: 20040301

REACTIONS (2)
  - INTERSTITIAL LUNG DISEASE [None]
  - RESPIRATORY TRACT INFECTION VIRAL [None]
